FAERS Safety Report 4723245-X (Version None)
Quarter: 2005Q3

REPORT INFORMATION
  Report Type: 
  Country: None (occurrence: None)
  Receive Date: 20050719
  Receipt Date: 20040827
  Transmission Date: 20060218
  Serious: Yes (Other)
  Sender: FDA-Public Use
  Company Number: 203718

PATIENT
  Age: 55 Year
  Sex: Female
  Weight: 54.4316 kg

DRUGS (2)
  1. AVONEX [Suspect]
     Indication: MULTIPLE SCLEROSIS
     Dosage: 30 UG QW; IM, UNKNOWN, QW; IM
     Route: 030
     Dates: start: 20040301, end: 20040301
  2. AVONEX [Suspect]
     Indication: MULTIPLE SCLEROSIS
     Dosage: 30 UG QW; IM, UNKNOWN, QW; IM
     Route: 030
     Dates: start: 20040301, end: 20040301

REACTIONS (2)
  - CONVULSION [None]
  - MUSCULOSKELETAL DISORDER [None]
